FAERS Safety Report 12225041 (Version 3)
Quarter: 2016Q2

REPORT INFORMATION
  Report Type: Spontaneous
  Country: US (occurrence: US)
  Receive Date: 20160331
  Receipt Date: 20160422
  Transmission Date: 20160815
  Serious: No
  Sender: FDA-Public Use
  Company Number: US-ROXANE LABORATORIES, INC.-2016-RO-00597RO

PATIENT
  Age: 71 Year
  Sex: Female
  Weight: 73 kg

DRUGS (8)
  1. IMIPRAMINE PAMOATE CAPSULES 125MG [Suspect]
     Active Substance: IMIPRAMINE PAMOATE
     Indication: PANIC ATTACK
     Dosage: 95 MG
     Route: 065
     Dates: end: 201603
  2. IMIPRAMINE PAMOATE CAPSULES 125MG [Suspect]
     Active Substance: IMIPRAMINE PAMOATE
     Dosage: 100 MG
     Route: 065
     Dates: start: 20160315
  3. BUSPIRONE [Concomitant]
     Active Substance: BUSPIRONE HYDROCHLORIDE
     Indication: ANXIETY
     Dosage: 60 MG
     Route: 065
  4. ATIVAN [Concomitant]
     Active Substance: LORAZEPAM
     Indication: ANXIETY
     Dosage: 1.5 MG
     Route: 065
  5. IMIPRAMINE PAMOATE CAPSULES 125MG [Suspect]
     Active Substance: IMIPRAMINE PAMOATE
     Indication: ANXIETY
     Dosage: 85 MG
     Route: 065
     Dates: start: 20160216
  6. DESIPRAMINE [Concomitant]
     Active Substance: DESIPRAMINE
     Dosage: 100 MG
     Route: 065
  7. BUSPIRONE [Concomitant]
     Active Substance: BUSPIRONE HYDROCHLORIDE
     Indication: DEPRESSION
  8. IMIPRAMINE PAMOATE CAPSULES 125MG [Suspect]
     Active Substance: IMIPRAMINE PAMOATE
     Indication: DEPRESSION
     Dosage: 100 MG
     Route: 065
     Dates: start: 201601, end: 20160216

REACTIONS (6)
  - Panic attack [None]
  - Drug ineffective [Not Recovered/Not Resolved]
  - Disease recurrence [None]
  - Therapy change [None]
  - Product quality issue [Unknown]
  - Drug level increased [Not Recovered/Not Resolved]

NARRATIVE: CASE EVENT DATE: 201602
